FAERS Safety Report 16646505 (Version 1)
Quarter: 2019Q3

REPORT INFORMATION
  Report Type: Spontaneous
  Country: CN (occurrence: CN)
  Receive Date: 20190730
  Receipt Date: 20190730
  Transmission Date: 20191004
  Serious: Yes (Other)
  Sender: FDA-Public Use
  Company Number: CN-BAXTER-2019BAX014644

PATIENT
  Age: 54 Year
  Sex: Female
  Weight: 38 kg

DRUGS (15)
  1. SODIUM CHLORIDE. [Suspect]
     Active Substance: SODIUM CHLORIDE
     Indication: MEDICATION DILUTION
     Dosage: 0.9% SODIUM CHLORIDE + CYCLOPHOSPHAMIDE 0.6 G
     Route: 041
     Dates: start: 20190708, end: 20190708
  2. PIRARUBICIN HYDROCHLORIDE [Suspect]
     Active Substance: PIRARUBICIN HYDROCHLORIDE
     Indication: BREAST CANCER
     Dosage: DOSE RE-INTRODUCED, 5% GLUCOSE + PIRARUBICIN
     Route: 041
  3. CISPLATIN. [Suspect]
     Active Substance: CISPLATIN
     Indication: BREAST CANCER
  4. SODIUM CHLORIDE. [Suspect]
     Active Substance: SODIUM CHLORIDE
     Dosage: DOSE RE-INTRODUCED, 0.9% SODIUM CHLORIDE + DOCETAXEL
     Route: 041
  5. GLUCOSE [Suspect]
     Active Substance: DEXTROSE
     Dosage: DOSE RE-INTRODUCED, 5% GLUCOSE + PIRARUBICIN
     Route: 041
  6. AOMINGRUN [Suspect]
     Active Substance: DOCETAXEL
     Indication: METASTASES TO BONE
     Dosage: 0.9% SODIUM CHLORIDE 250 ML + DOCETAXEL
     Route: 041
     Dates: start: 20190708, end: 20190708
  7. SODIUM CHLORIDE. [Suspect]
     Active Substance: SODIUM CHLORIDE
     Dosage: DOSE RE-INTRODUCED, 0.9% SODIUM CHLORIDE + CYCLOPHOSPHAMIDE
     Route: 041
  8. ENDOXAN [Suspect]
     Active Substance: CYCLOPHOSPHAMIDE
     Indication: METASTASES TO BONE
     Dosage: 0.9% SODIUM CHLORIDE 500 ML + CYCLOPHOSPHAMIDE ON D1
     Route: 041
     Dates: start: 20190708, end: 20190708
  9. ENDOXAN [Suspect]
     Active Substance: CYCLOPHOSPHAMIDE
     Indication: BREAST CANCER
     Dosage: DOSE RE-INTRODUCED, 0.9% SODIUM CHLORIDE + CYCLOPHOSPHAMIDE
     Route: 041
  10. CISPLATIN. [Suspect]
     Active Substance: CISPLATIN
     Indication: METASTASES TO BONE
     Dosage: INTRATHORACIC PERFUSION, CISPLATIN + 0.9% NS
     Route: 038
     Dates: start: 20190705
  11. GLUCOSE [Suspect]
     Active Substance: DEXTROSE
     Indication: MEDICATION DILUTION
     Dosage: 5% GLUCOSE + PIRARUBICIN 50 MG
     Route: 041
     Dates: start: 20190708, end: 20190708
  12. 0.9% SODIUM CHLORIDE INJECTION [Suspect]
     Active Substance: SODIUM CHLORIDE
     Indication: MEDICATION DILUTION
     Dosage: INTRATHORACIC PERFUSION, CISPLATIN + 0.9% NS
     Route: 038
     Dates: start: 20190705
  13. PIRARUBICIN HYDROCHLORIDE [Suspect]
     Active Substance: PIRARUBICIN HYDROCHLORIDE
     Indication: METASTASES TO BONE
     Dosage: 5% GLUCOSE + PIRARUBICIN
     Route: 041
     Dates: start: 20190708, end: 20190708
  14. SODIUM CHLORIDE. [Suspect]
     Active Substance: SODIUM CHLORIDE
     Dosage: 0.9% SODIUM CHLORIDE  + DOCETAXEL 100 MG
     Route: 041
     Dates: start: 20190708, end: 20190708
  15. AOMINGRUN [Suspect]
     Active Substance: DOCETAXEL
     Indication: BREAST CANCER
     Dosage: DOSE RE-INTRODUCED, 0.9% SODIUM CHLORIDE + DOCETAXEL
     Route: 041

REACTIONS (1)
  - Bone marrow failure [Recovering/Resolving]

NARRATIVE: CASE EVENT DATE: 20190716
